FAERS Safety Report 24263646 (Version 2)
Quarter: 2024Q3

REPORT INFORMATION
  Report Type: Spontaneous
  Country: US (occurrence: US)
  Receive Date: 20240829
  Receipt Date: 20240917
  Transmission Date: 20241017
  Serious: Yes (Other)
  Sender: MERCK
  Company Number: US-009507513-2408USA008510

PATIENT
  Age: 57 Year
  Sex: Male

DRUGS (1)
  1. KEYTRUDA [Suspect]
     Active Substance: PEMBROLIZUMAB
     Indication: Mesothelioma
     Dosage: UNK, EVERY 23 DAYS
     Route: 042
     Dates: start: 2017

REACTIONS (4)
  - Bladder cancer [Recovering/Resolving]
  - Gastrointestinal carcinoma [Recovering/Resolving]
  - Inappropriate schedule of product administration [Unknown]
  - Incorrect product administration duration [Unknown]

NARRATIVE: CASE EVENT DATE: 20170101
